FAERS Safety Report 16341179 (Version 1)
Quarter: 2019Q2

REPORT INFORMATION
  Report Type: Spontaneous
  Country: ES (occurrence: ES)
  Receive Date: 20190522
  Receipt Date: 20190522
  Transmission Date: 20190711
  Serious: Yes (Other)
  Sender: FDA-Public Use
  Company Number: ES-ROCHE-2323397

PATIENT
  Age: 69 Year
  Sex: Male

DRUGS (4)
  1. DEXCLORFENIRAMINA [Concomitant]
     Active Substance: DEXCHLORPHENIRAMINE
     Indication: PREMEDICATION
     Route: 042
     Dates: start: 20180601, end: 20180601
  2. METILPREDNISOLONA [METHYLPREDNISOLONE] [Concomitant]
     Indication: PREMEDICATION
     Route: 042
     Dates: start: 20180601, end: 20180601
  3. MABTHERA [Suspect]
     Active Substance: RITUXIMAB
     Indication: ENDOCRINE OPHTHALMOPATHY
     Route: 041
     Dates: start: 20180601, end: 20180601
  4. PARACETAMOL [Concomitant]
     Active Substance: ACETAMINOPHEN
     Indication: PREMEDICATION
     Route: 042
     Dates: start: 20180601, end: 20180601

REACTIONS (1)
  - Blindness transient [Recovered/Resolved]

NARRATIVE: CASE EVENT DATE: 20180601
